FAERS Safety Report 9231578 (Version 1)
Quarter: 2013Q2

REPORT INFORMATION
  Report Type: Spontaneous
  Country: CA (occurrence: CA)
  Receive Date: 20130415
  Receipt Date: 20130415
  Transmission Date: 20140414
  Serious: Yes (Other)
  Sender: FDA-Public Use
  Company Number: CA-ASTRAZENECA-2013SE22711

PATIENT
  Age: 80 Year
  Sex: Female

DRUGS (8)
  1. LOSEC [Suspect]
     Indication: ULCER
     Route: 048
  2. METFORMIN [Concomitant]
     Route: 048
  3. ENALAPRIL [Concomitant]
     Route: 048
  4. SULCRATE [Concomitant]
     Route: 048
  5. DIOVOL [Concomitant]
     Route: 048
  6. CITALOPRAM [Concomitant]
     Route: 048
  7. VASOTEC [Concomitant]
  8. CELEXA [Concomitant]

REACTIONS (9)
  - Madarosis [Unknown]
  - Alopecia [Unknown]
  - Bowel movement irregularity [Unknown]
  - Acne [Unknown]
  - Mucosal inflammation [Unknown]
  - Visual acuity reduced [Unknown]
  - Abdominal pain upper [Unknown]
  - Diarrhoea [Unknown]
  - Dizziness [Unknown]
